FAERS Safety Report 16462825 (Version 1)
Quarter: 2019Q2

REPORT INFORMATION
  Report Type: Report from Study
  Country: US (occurrence: US)
  Receive Date: 20190621
  Receipt Date: 20190621
  Transmission Date: 20190711
  Serious: Yes (Other)
  Sender: FDA-Public Use
  Company Number: US-TESARO-2019-TSO00791-US

PATIENT
  Sex: Female
  Weight: 78 kg

DRUGS (2)
  1. ZEJULA [Suspect]
     Active Substance: NIRAPARIB
     Dosage: 200 MG, QPM WITHOUT FOOD
     Route: 048
  2. ZEJULA [Suspect]
     Active Substance: NIRAPARIB
     Indication: OVARIAN CANCER
     Dosage: 300 MG, QD
     Route: 048
     Dates: start: 20190115

REACTIONS (10)
  - Neuropathy peripheral [Unknown]
  - Hair texture abnormal [Not Recovered/Not Resolved]
  - Product odour abnormal [Unknown]
  - Paraesthesia oral [Recovering/Resolving]
  - Nail disorder [Not Recovered/Not Resolved]
  - Musculoskeletal pain [Not Recovered/Not Resolved]
  - Dry skin [Not Recovered/Not Resolved]
  - Insomnia [Not Recovered/Not Resolved]
  - Tongue coated [Recovering/Resolving]
  - Onychoclasis [Unknown]
